FAERS Safety Report 9886074 (Version 1)
Quarter: 2014Q1

REPORT INFORMATION
  Report Type: Spontaneous
  Country: US (occurrence: US)
  Receive Date: 20140210
  Receipt Date: 20140210
  Transmission Date: 20141002
  Serious: No
  Sender: FDA-Public Use
  Company Number: US-PFIZER INC-2014033617

PATIENT
  Sex: Female

DRUGS (1)
  1. ADVIL [Suspect]
     Dosage: UNK
     Route: 048

REACTIONS (4)
  - Wrong technique in drug usage process [Unknown]
  - Feeling abnormal [Not Recovered/Not Resolved]
  - Burning sensation [Not Recovered/Not Resolved]
  - Glossodynia [Not Recovered/Not Resolved]
